FAERS Safety Report 10556991 (Version 1)
Quarter: 2014Q4

REPORT INFORMATION
  Report Type: Spontaneous
  Country: None (occurrence: None)
  Receive Date: 20141030
  Receipt Date: 20141030
  Transmission Date: 20150529
  Serious: Yes (Hospitalization)
  Sender: FDA-Public Use
  Company Number: None

PATIENT
  Age: 84 Year
  Sex: Female
  Weight: 68.9 kg

DRUGS (1)
  1. ELIQUIS [Suspect]
     Active Substance: APIXABAN
     Indication: ATRIAL FIBRILLATION
     Dosage: 1 PILL, BID, ORAL
     Route: 048

REACTIONS (4)
  - Syncope [None]
  - Haemorrhage [None]
  - Fall [None]
  - Haemoglobin decreased [None]

NARRATIVE: CASE EVENT DATE: 20141022
